FAERS Safety Report 10223554 (Version 1)
Quarter: 2014Q2

REPORT INFORMATION
  Report Type: Report from Study
  Country: US (occurrence: US)
  Receive Date: 20140609
  Receipt Date: 20140609
  Transmission Date: 20141212
  Serious: Yes (Other)
  Sender: FDA-Public Use
  Company Number: US-BIOGENIDEC-2014BI054223

PATIENT
  Sex: Female
  Weight: 54 kg

DRUGS (6)
  1. AVONEX [Suspect]
     Indication: MULTIPLE SCLEROSIS
     Route: 030
  2. GABAPENTIN [Concomitant]
  3. LORTAB [Concomitant]
     Dates: start: 2009
  4. AMITRIPTYLINE [Concomitant]
     Dates: start: 2004
  5. STADOL NS [Concomitant]
     Dates: start: 2010
  6. LEXAPRO [Concomitant]

REACTIONS (4)
  - Coma [Recovered/Resolved]
  - Hysterectomy [Recovered/Resolved]
  - Colectomy [Unknown]
  - Migraine [Unknown]
